FAERS Safety Report 21124778 (Version 1)
Quarter: 2022Q3

REPORT INFORMATION
  Report Type: Spontaneous
  Country: FR (occurrence: FR)
  Receive Date: 20220725
  Receipt Date: 20220725
  Transmission Date: 20221027
  Serious: Yes (Hospitalization)
  Sender: FDA-Public Use
  Company Number: None

PATIENT
  Age: 72 Year
  Sex: Female
  Weight: 34 kg

DRUGS (5)
  1. ESOMEPRAZOLE [Suspect]
     Active Substance: ESOMEPRAZOLE
     Indication: Product used for unknown indication
     Dates: start: 20220408, end: 20220510
  2. URSODIOL [Suspect]
     Active Substance: URSODIOL
     Indication: Amyloidosis
     Dosage: STRENGTH: 250 MG
     Dates: start: 20220408, end: 20220510
  3. DEXAMETHASONE [Suspect]
     Active Substance: DEXAMETHASONE
     Indication: Plasma cell myeloma
     Dates: start: 20210202, end: 20211231
  4. CYCLOPHOSPHAMIDE [Suspect]
     Active Substance: CYCLOPHOSPHAMIDE
     Indication: Plasma cell myeloma
     Dosage: STRENGTH: 100 MG
     Dates: start: 20210202, end: 20211231
  5. VELCADE [Suspect]
     Active Substance: BORTEZOMIB
     Indication: Plasma cell myeloma
     Dosage: STRENGTH: 3.5 MG
     Dates: start: 20210202, end: 20211231

REACTIONS (1)
  - Posterior reversible encephalopathy syndrome [Not Recovered/Not Resolved]

NARRATIVE: CASE EVENT DATE: 20220510
